FAERS Safety Report 7082201-X (Version None)
Quarter: 2010Q4

REPORT INFORMATION
  Report Type: 
  Country: None (occurrence: None)
  Receive Date: 20101103
  Receipt Date: 20101020
  Transmission Date: 20110411
  Serious: Yes (Death, Other)
  Sender: FDA-Public Use
  Company Number: JP-GENZYME-FLUD-1000350

PATIENT

DRUGS (3)
  1. FLUDARA [Suspect]
     Indication: STEM CELL TRANSPLANT
     Dosage: UNK
     Route: 065
  2. FLUDARA [Suspect]
     Indication: THERAPEUTIC PROCEDURE
  3. FLUDARA [Suspect]
     Indication: ACUTE MYELOID LEUKAEMIA

REACTIONS (5)
  - ACUTE MYELOID LEUKAEMIA [None]
  - ENCEPHALOMYELITIS [None]
  - HUMAN HERPESVIRUS 6 INFECTION [None]
  - POST TRANSPLANT DISTAL LIMB SYNDROME [None]
  - TYPE III IMMUNE COMPLEX MEDIATED REACTION [None]
